FAERS Safety Report 6412172-8 (Version None)
Quarter: 2009Q4

REPORT INFORMATION
  Report Type: 
  Country: None (occurrence: None)
  Receive Date: 20091023
  Receipt Date: 20091020
  Transmission Date: 20100525
  Serious: Yes (Other)
  Sender: FDA-Public Use
  Company Number: A0807715A

PATIENT
  Age: 60 Year
  Sex: Female

DRUGS (3)
  1. TYKERB [Suspect]
     Indication: BREAST CANCER
     Dosage: 250MG PER DAY
     Route: 048
     Dates: start: 20080301
  2. CAPECITABINE [Suspect]
     Indication: BREAST CANCER
     Dosage: 2GM2 CYCLIC
     Dates: start: 20080301
  3. ZOLEDRONIC ACID [Concomitant]

REACTIONS (5)
  - GASTROINTESTINAL TOXICITY [None]
  - HAEMATOTOXICITY [None]
  - LUNG NEOPLASM [None]
  - PALMAR-PLANTAR ERYTHRODYSAESTHESIA SYNDROME [None]
  - PLEURAL EFFUSION [None]
